FAERS Safety Report 5610458-8 (Version None)
Quarter: 2008Q1

REPORT INFORMATION
  Report Type: 
  Country: None (occurrence: None)
  Receive Date: 20080128
  Receipt Date: 20080120
  Transmission Date: 20080703
  Serious: Yes (Other)
  Sender: FDA-Public Use
  Company Number: OSH-163-0313748-00

PATIENT
  Age: 38 Week

DRUGS (1)
  1. EPINEPHRINE [Suspect]
     Indication: HEART RATE DECREASED
     Dosage: 0.1 MG, NOT REPORTED, ENDOTRACHEAL, NOT REPORTED, NOT REPORTED, VIA ENDOTRACHEAL TUBE
     Route: 007

REACTIONS (2)
  - FALSE POSITIVE LABORATORY RESULT [None]
  - MEDICAL DEVICE COMPLICATION [None]
